FAERS Safety Report 9323690 (Version 1)
Quarter: 2013Q2

REPORT INFORMATION
  Report Type: Spontaneous
  Country: CA (occurrence: CA)
  Receive Date: 20130603
  Receipt Date: 20130603
  Transmission Date: 20140414
  Serious: Yes (Other)
  Sender: FDA-Public Use
  Company Number: CA-JNJFOC-20130520145

PATIENT
  Sex: Female

DRUGS (1)
  1. TAPENTADOL IR [Suspect]
     Indication: PAIN
     Dosage: 50 MG FOUR TIMES A DAY
     Route: 048

REACTIONS (1)
  - Delirium [Recovered/Resolved]
